FAERS Safety Report 4488722-8 (Version None)
Quarter: 2004Q4

REPORT INFORMATION
  Report Type: 
  Country: None (occurrence: None)
  Receive Date: 20041025
  Receipt Date: 20041012
  Transmission Date: 20050328
  Serious: Yes (Hospitalization, Other)
  Sender: FDA-Public Use
  Company Number: 2004077616

PATIENT
  Sex: 0

DRUGS (2)
  1. ZITHROMAX [Suspect]
     Indication: PHARYNGOTONSILLITIS
     Dosage: ORAL
     Route: 048
     Dates: start: 20040521, end: 20040501
  2. CEFUROXIME SODIUM (CEFUROXIME SODIUM) [Suspect]
     Indication: PHARYNGITIS
     Dosage: ORAL
     Route: 048
     Dates: start: 20040525

REACTIONS (11)
  - BLOOD IMMUNOGLOBULIN E INCREASED [None]
  - BUNDLE BRANCH BLOCK RIGHT [None]
  - C-REACTIVE PROTEIN INCREASED [None]
  - CARDIOVASCULAR DISORDER [None]
  - DYSPNOEA [None]
  - EXANTHEM [None]
  - GASTROINTESTINAL DISORDER [None]
  - PURULENCE [None]
  - SINUS ARRHYTHMIA [None]
  - TONSILLITIS [None]
  - URTICARIA [None]
